FAERS Safety Report 9312081 (Version 1)
Quarter: 2013Q2

REPORT INFORMATION
  Report Type: Spontaneous
  Country: US (occurrence: US)
  Receive Date: 20130528
  Receipt Date: 20130528
  Transmission Date: 20140414
  Serious: Yes (Other)
  Sender: FDA-Public Use
  Company Number: US-BAYER-2013-064281

PATIENT
  Age: 61 Year
  Sex: Female

DRUGS (4)
  1. ACETYLSALICYLIC ACID [Suspect]
  2. CLOPIDOGREL [Interacting]
  3. DESVENLAFAXINE [Interacting]
     Indication: DEPRESSION
  4. ASPIRIN W/BUTALBITAL/CAFFEINE [Concomitant]

REACTIONS (3)
  - Coagulopathy [None]
  - Haematoma [None]
  - Drug interaction [None]
